FAERS Safety Report 20063955 (Version 1)
Quarter: 2021Q4

REPORT INFORMATION
  Report Type: Spontaneous
  Country: GB (occurrence: GB)
  Receive Date: 20211112
  Receipt Date: 20211112
  Transmission Date: 20220303
  Serious: Yes (Other)
  Sender: FDA-Public Use
  Company Number: GB-ARIS GLOBAL-MSH202110-000083

PATIENT
  Sex: Female

DRUGS (4)
  1. LIOTHYRONINE SODIUM [Suspect]
     Active Substance: LIOTHYRONINE SODIUM
     Indication: Hyperthyroidism
     Dosage: LIOTHYRONINE 20 MCG AFTER CUTTING INTO 4 PIECES.
     Route: 065
  2. LIOTHYRONINE SODIUM [Suspect]
     Active Substance: LIOTHYRONINE SODIUM
     Indication: Hyperthyroidism
     Dosage: 5 MICROGRAM DAILY;
     Route: 048
     Dates: start: 20211011, end: 20211014
  3. THYROXINE [Concomitant]
     Active Substance: LEVOTHYROXINE
     Indication: Hyperthyroidism
     Dosage: 75 MICROGRAM DAILY;
  4. VITAMIN B12 [Concomitant]
     Active Substance: CYANOCOBALAMIN
     Indication: Pernicious anaemia

REACTIONS (5)
  - Malaise [Recovered/Resolved]
  - Palpitations [Recovered/Resolved]
  - Insomnia [Recovered/Resolved]
  - Product substitution issue [Unknown]
  - Product administration error [Unknown]

NARRATIVE: CASE EVENT DATE: 20211013
